FAERS Safety Report 9479209 (Version 1)
Quarter: 2013Q3

REPORT INFORMATION
  Report Type: Spontaneous
  Country: US (occurrence: US)
  Receive Date: 20130827
  Receipt Date: 20130827
  Transmission Date: 20140515
  Serious: Yes (Other)
  Sender: FDA-Public Use
  Company Number: US-BRISTOL-MYERS SQUIBB COMPANY-19210772

PATIENT
  Age: 48 Year
  Sex: Male
  Weight: 68.93 kg

DRUGS (5)
  1. PRAVACHOL [Suspect]
     Indication: HYPERTENSION
  2. LIPITOR [Suspect]
     Indication: BLOOD CHOLESTEROL INCREASED
     Dosage: TAB INCREASED TO 80MG ON UNKNOWN DATE.
     Route: 048
     Dates: start: 1991
  3. ENALAPRIL [Suspect]
     Indication: MYOCARDIAL INFARCTION
  4. NIACIN [Concomitant]
  5. ASPIRIN [Concomitant]

REACTIONS (1)
  - Myocardial infarction [Unknown]
